FAERS Safety Report 6190225-X (Version None)
Quarter: 2009Q2

REPORT INFORMATION
  Report Type: 
  Country: None (occurrence: None)
  Receive Date: 20090514
  Receipt Date: 20090508
  Transmission Date: 20091009
  Serious: Yes (Death, Hospitalization)
  Sender: FDA-Public Use
  Company Number: CA-PFIZER INC-2009206348

PATIENT
  Age: 59 Year

DRUGS (10)
  1. SUNITINIB MALATE [Suspect]
     Indication: TRANSITIONAL CELL CARCINOMA
     Dosage: 50 MG, 1X/DAY FOR 4 WKS FOLLOWED BY 2 WKS OFF
     Dates: start: 20090313, end: 20090410
  2. ASPIRIN [Concomitant]
     Indication: CARDIAC DISORDER
     Dosage: UNK
     Route: 048
     Dates: start: 20060101
  3. LIPITOR [Concomitant]
     Indication: HYPERCHOLESTEROLAEMIA
     Dosage: UNK
     Route: 048
     Dates: start: 20060101
  4. QUININE [Concomitant]
     Indication: MUSCLE SPASMS
     Dosage: UNK
     Route: 048
     Dates: start: 20080714
  5. FRAGMIN [Concomitant]
     Dosage: UNK
     Route: 058
     Dates: start: 20070901
  6. BISOPROLOL [Concomitant]
     Indication: HYPERTENSION
     Dosage: UNK
     Route: 048
     Dates: start: 20060101
  7. TAMSULOSIN HYDROCHLORIDE [Concomitant]
     Indication: POLLAKIURIA
     Dosage: UNK
     Route: 048
     Dates: start: 20090226
  8. ZANTAC [Concomitant]
     Indication: DYSPEPSIA
     Dosage: UNK
     Route: 048
     Dates: start: 20090327
  9. OXYCET [Concomitant]
     Indication: PAIN
     Dosage: UNK
     Route: 048
     Dates: start: 20090403, end: 20090429
  10. CLOXACILLIN [Concomitant]
     Indication: SKIN ULCER
     Dosage: UNK
     Route: 048
     Dates: start: 20090408, end: 20090423

REACTIONS (3)
  - DYSPNOEA [None]
  - PELVIC PAIN [None]
  - PULMONARY HYPERTENSION [None]
